FAERS Safety Report 5346733-4 (Version None)
Quarter: 2007Q2

REPORT INFORMATION
  Report Type: 
  Country: None (occurrence: None)
  Receive Date: 20070604
  Receipt Date: 20070523
  Transmission Date: 20071010
  Serious: Yes (Other)
  Sender: FDA-Public Use
  Company Number: ST-2007-009539

PATIENT
  Age: 77 Year
  Sex: Female

DRUGS (3)
  1. OLMETEC (OLMESARTAN MEDOXOMIL) (TABLET) (OLMESARTAN MEDOXOMIL) [Suspect]
     Indication: HYPERTENSION
     Dosage: PER ORAL
     Route: 048
     Dates: start: 20040701, end: 20070109
  2. LIVALO (TABLET) [Suspect]
     Indication: HYPERLIPIDAEMIA
     Dosage: 1 MG (1 MG, 1 IN 1 D), PER ORAL
     Route: 048
     Dates: start: 20050501, end: 20070109
  3. BAYASPIRIN (ACETYLSALICYLIC ACID) (TABLET) (ACETYLSALICYLIC ACID) [Suspect]
     Dosage: 100 MG (100 MG, 1 IN 1 D), PER ORAL
     Route: 048
     Dates: start: 20040701, end: 20070109

REACTIONS (5)
  - BLISTER [None]
  - ERYTHEMA [None]
  - PEMPHIGUS [None]
  - PRURITUS [None]
  - RASH [None]
